FAERS Safety Report 6338733-2 (Version None)
Quarter: 2009Q3

REPORT INFORMATION
  Report Type: 
  Country: None (occurrence: None)
  Receive Date: 20090903
  Receipt Date: 20090706
  Transmission Date: 20100115
  Serious: Yes (Disabling, Other)
  Sender: FDA-Public Use
  Company Number: A0781900A

PATIENT
  Age: 47 Year
  Sex: Female
  Weight: 81.8 kg

DRUGS (3)
  1. RELENZA [Suspect]
     Indication: INFLUENZA
     Dosage: 2PUFF TWICE PER DAY
     Route: 055
     Dates: start: 20090421, end: 20090424
  2. ROCEPHIN [Concomitant]
  3. ZITHROMAX [Concomitant]

REACTIONS (4)
  - DRUG INEFFECTIVE [None]
  - FATIGUE [None]
  - HEADACHE [None]
  - HOT FLUSH [None]
